FAERS Safety Report 5068694-8 (Version None)
Quarter: 2006Q3

REPORT INFORMATION
  Report Type: 
  Country: None (occurrence: None)
  Receive Date: 20060802
  Receipt Date: 20060216
  Transmission Date: 20061208
  Serious: No
  Sender: FDA-Public Use
  Company Number: US-BRISTOL-MYERS SQUIBB COMPANY-13286232

PATIENT
  Age: 82 Year
  Sex: Female
  Weight: 60 kg

DRUGS (3)
  1. COUMADIN [Suspect]
     Indication: ATRIAL FIBRILLATION
  2. LEVAQUIN [Concomitant]
  3. RIFAMPIN [Concomitant]
     Dates: end: 20060201

REACTIONS (1)
  - INTERNATIONAL NORMALISED RATIO DECREASED [None]
